FAERS Safety Report 6186944-1 (Version None)
Quarter: 2009Q2

REPORT INFORMATION
  Report Type: 
  Country: None (occurrence: None)
  Receive Date: 20090508
  Receipt Date: 20090508
  Transmission Date: 20091009
  Serious: Yes (Other)
  Sender: FDA-Public Use
  Company Number: None

PATIENT
  Age: 38 Month
  Sex: Male
  Weight: 74.8435 kg

DRUGS (2)
  1. SIMVASTATIN [Suspect]
     Indication: BLOOD PRESSURE
     Dosage: 10MG TWICE PO
     Route: 048
  2. SIMVASTATIN [Suspect]
     Indication: FAMILIAL RISK FACTOR
     Dosage: 10MG TWICE PO
     Route: 048

REACTIONS (1)
  - MUSCLE INJURY [None]
